FAERS Safety Report 5496494-3 (Version None)
Quarter: 2007Q4

REPORT INFORMATION
  Report Type: 
  Country: None (occurrence: None)
  Receive Date: 20071025
  Receipt Date: 20070720
  Transmission Date: 20080405
  Serious: No
  Sender: FDA-Public Use
  Company Number: A0654415A

PATIENT
  Age: 63 Year
  Sex: Female
  Weight: 66.8 kg

DRUGS (4)
  1. ADVAIR DISKUS 100/50 [Suspect]
     Indication: ASTHMA
     Dosage: 1PUFF TWICE PER DAY
     Route: 055
     Dates: start: 20070530, end: 20070603
  2. ALBUTEROL [Concomitant]
  3. NASALCROM [Concomitant]
     Indication: MULTIPLE ALLERGIES
  4. QUERCETIN [Concomitant]
     Indication: MULTIPLE ALLERGIES

REACTIONS (3)
  - DRUG INEFFECTIVE [None]
  - MOUTH ULCERATION [None]
  - ORAL PAIN [None]
